FAERS Safety Report 6469328-8 (Version None)
Quarter: 2009Q4

REPORT INFORMATION
  Report Type: 
  Country: None (occurrence: None)
  Receive Date: 20091203
  Receipt Date: 20091109
  Transmission Date: 20100525
  Serious: Yes (Other)
  Sender: FDA-Public Use
  Company Number: PHHY2009GB49318

PATIENT
  Age: 45 Year
  Sex: Female

DRUGS (5)
  1. CARBAMAZEPINE [Suspect]
  2. PREGABALIN [Concomitant]
  3. LEVETIRACETAM [Concomitant]
  4. CLOBAZAM [Concomitant]
  5. LACOSAMIDE [Concomitant]

REACTIONS (2)
  - MEMORY IMPAIRMENT [None]
  - RESTLESSNESS [None]
